FAERS Safety Report 25851442 (Version 2)
Quarter: 2025Q4

REPORT INFORMATION
  Report Type: Spontaneous
  Country: EU (occurrence: EU)
  Receive Date: 20250926
  Receipt Date: 20251008
  Transmission Date: 20260117
  Serious: Yes (Death, Hospitalization, Other)
  Sender: VIIV
  Company Number: EU-VIIV HEALTHCARE-PT2025EME122636

PATIENT
  Sex: Male

DRUGS (4)
  1. VOCABRIA [Suspect]
     Active Substance: CABOTEGRAVIR SODIUM
     Indication: HIV infection
     Dosage: UNK
  2. VOCABRIA [Suspect]
     Active Substance: CABOTEGRAVIR SODIUM
  3. VOCABRIA [Suspect]
     Active Substance: CABOTEGRAVIR SODIUM
  4. RILPIVIRINE [Suspect]
     Active Substance: RILPIVIRINE
     Indication: HIV infection
     Dosage: UNK
     Route: 065

REACTIONS (5)
  - Death [Fatal]
  - Septic shock [Unknown]
  - Peritonitis [Unknown]
  - Gastric ulcer perforation [Unknown]
  - Liver abscess [Unknown]

NARRATIVE: CASE EVENT DATE: 20250725
